FAERS Safety Report 25196584 (Version 1)
Quarter: 2025Q2

REPORT INFORMATION
  Report Type: Spontaneous
  Country: US (occurrence: US)
  Receive Date: 20250415
  Receipt Date: 20250415
  Transmission Date: 20250717
  Serious: Yes (Other)
  Sender: CHEPLAPHARM
  Company Number: US-CHEPLA-2025004762

PATIENT
  Age: 66 Year
  Sex: Female
  Weight: 79 kg

DRUGS (3)
  1. CAPECITABINE [Suspect]
     Active Substance: CAPECITABINE
     Indication: Breast cancer stage IV
     Route: 048
     Dates: start: 20241005
  2. CAPECITABINE [Suspect]
     Active Substance: CAPECITABINE
     Indication: Breast cancer stage IV
     Dosage: MORNING ?DAILY DOSE: 1000 MILLIGRAM
     Route: 048
  3. CAPECITABINE [Suspect]
     Active Substance: CAPECITABINE
     Indication: Breast cancer stage IV
     Dosage: NIGHT?DAILY DOSE: 1500 MILLIGRAM
     Route: 048

REACTIONS (5)
  - Tunnel vision [Not Recovered/Not Resolved]
  - Diplopia [Not Recovered/Not Resolved]
  - Blood pressure decreased [Unknown]
  - Palmar-plantar erythrodysaesthesia syndrome [Not Recovered/Not Resolved]
  - Nail growth abnormal [Not Recovered/Not Resolved]

NARRATIVE: CASE EVENT DATE: 20250326
